FAERS Safety Report 6109075-5 (Version None)
Quarter: 2009Q1

REPORT INFORMATION
  Report Type: 
  Country: None (occurrence: None)
  Receive Date: 20090310
  Receipt Date: 20090226
  Transmission Date: 20090719
  Serious: Yes (Other)
  Sender: FDA-Public Use
  Company Number: US-ELI_LILLY_AND_COMPANY-US200902001790

PATIENT
  Sex: Female
  Weight: 48.98 kg

DRUGS (6)
  1. FORTEO [Suspect]
     Indication: OSTEOPOROSIS
     Dosage: UNK, UNK
     Dates: start: 20090202, end: 20090207
  2. FORTEO [Suspect]
     Dates: start: 20090212
  3. FORTEO [Suspect]
     Dosage: UNK, EACH EVENING
     Dates: start: 20090224
  4. SPIRIVA [Concomitant]
  5. PROVENTIL                               /USA/ [Concomitant]
  6. ADVAIR HFA [Concomitant]

REACTIONS (10)
  - BRONCHITIS [None]
  - FATIGUE [None]
  - FEELING ABNORMAL [None]
  - GAIT DISTURBANCE [None]
  - HEADACHE [None]
  - HYPERSOMNIA [None]
  - LOSS OF CONSCIOUSNESS [None]
  - SOMNOLENCE [None]
  - SUDDEN ONSET OF SLEEP [None]
  - VERTIGO [None]
